FAERS Safety Report 5359672-X (Version None)
Quarter: 2007Q2

REPORT INFORMATION
  Report Type: 
  Country: None (occurrence: None)
  Receive Date: 20070615
  Receipt Date: 20070608
  Transmission Date: 20071010
  Serious: Yes (Death, Hospitalization)
  Sender: FDA-Public Use
  Company Number: GB-ABBOTT-07P-167-0370890-00

PATIENT
  Sex: Male

DRUGS (2)
  1. VALPROATE SODIUM [Suspect]
     Indication: EPILEPSY
     Route: 048
     Dates: end: 20070503
  2. PHENYTOIN [Concomitant]
     Indication: EPILEPSY
     Route: 048

REACTIONS (4)
  - AMMONIA INCREASED [None]
  - DIABETES MELLITUS [None]
  - ENCEPHALOPATHY [None]
  - METABOLIC ENCEPHALOPATHY [None]
